FAERS Safety Report 9470692 (Version 1)
Quarter: 2013Q3

REPORT INFORMATION
  Report Type: Spontaneous
  Country: US (occurrence: US)
  Receive Date: 20130822
  Receipt Date: 20130822
  Transmission Date: 20140515
  Serious: No
  Sender: FDA-Public Use
  Company Number: US-009507513-1308USA009345

PATIENT
  Sex: 0

DRUGS (1)
  1. IMPLANON [Suspect]
     Dosage: 1 ROD,
     Route: 059
     Dates: end: 201302

REACTIONS (3)
  - Physical abuse [Unknown]
  - Device breakage [Unknown]
  - Product quality issue [Unknown]
